FAERS Safety Report 5249426-7 (Version None)
Quarter: 2007Q1

REPORT INFORMATION
  Report Type: 
  Country: None (occurrence: None)
  Receive Date: 20070228
  Receipt Date: 20061019
  Transmission Date: 20070707
  Serious: No
  Sender: FDA-Public Use
  Company Number: US-GLAXOSMITHKLINE-A0624293A

PATIENT
  Age: 76 Year
  Sex: Female

DRUGS (1)
  1. VALTREX [Suspect]
     Indication: DRUG USE FOR UNKNOWN INDICATION
     Dosage: 1G THREE TIMES PER DAY
     Route: 048
     Dates: start: 20061001, end: 20061001

REACTIONS (4)
  - DIZZINESS [None]
  - DYSPNOEA [None]
  - NAUSEA [None]
  - STOMACH DISCOMFORT [None]
